FAERS Safety Report 21475048 (Version 1)
Quarter: 2022Q4

REPORT INFORMATION
  Report Type: Spontaneous
  Country: US (occurrence: US)
  Receive Date: 20221019
  Receipt Date: 20221019
  Transmission Date: 20230113
  Serious: Yes (Other)
  Sender: FDA-Public Use
  Company Number: US-NOVARTISPH-NVSC2022US233604

PATIENT
  Sex: Male

DRUGS (1)
  1. KYMRIAH [Suspect]
     Active Substance: TISAGENLECLEUCEL
     Indication: Product used for unknown indication
     Dosage: UNK, ONCE/SINGLE (1.5E8 CAR-POSITIVE VIABLE T-CELLS)
     Route: 041
     Dates: start: 20220906, end: 20220906

REACTIONS (2)
  - Blast cell count increased [Unknown]
  - Ill-defined disorder [Unknown]
